FAERS Safety Report 16272489 (Version 2)
Quarter: 2019Q2

REPORT INFORMATION
  Report Type: Spontaneous
  Country: US (occurrence: US)
  Receive Date: 20190503
  Receipt Date: 20190514
  Transmission Date: 20190711
  Serious: Yes (Other)
  Sender: FDA-Public Use
  Company Number: US-ASTRAZENECA-2018SF21186

PATIENT
  Sex: Female
  Weight: 139.8 kg

DRUGS (13)
  1. PRILOSEC [Suspect]
     Active Substance: OMEPRAZOLE MAGNESIUM
     Route: 048
     Dates: start: 2014, end: 2016
  2. PRILOSEC [Suspect]
     Active Substance: OMEPRAZOLE MAGNESIUM
     Route: 048
     Dates: start: 20160816
  3. METFORMIN [Concomitant]
     Active Substance: METFORMIN HYDROCHLORIDE
  4. NEURONTIN [Concomitant]
     Active Substance: GABAPENTIN
  5. TRAZODONE [Concomitant]
     Active Substance: TRAZODONE HYDROCHLORIDE
  6. PRILOSEC [Suspect]
     Active Substance: OMEPRAZOLE MAGNESIUM
     Route: 048
     Dates: start: 20150723
  7. VENTOLIN [Concomitant]
     Active Substance: ALBUTEROL SULFATE
  8. TROKENDI [Concomitant]
     Active Substance: TOPIRAMATE
  9. RESTORIL [Concomitant]
     Active Substance: TEMAZEPAM
  10. PROTONIX [Suspect]
     Active Substance: PANTOPRAZOLE SODIUM
     Route: 065
     Dates: start: 2014, end: 2016
  11. HYDROCHLOROTHIAZIDE. [Concomitant]
     Active Substance: HYDROCHLOROTHIAZIDE
  12. TOPAMAX [Concomitant]
     Active Substance: TOPIRAMATE
  13. ZANTAC [Concomitant]
     Active Substance: RANITIDINE HYDROCHLORIDE

REACTIONS (3)
  - Acute kidney injury [Unknown]
  - Chronic kidney disease [Unknown]
  - Renal failure [Unknown]
